FAERS Safety Report 5369398-4 (Version None)
Quarter: 2007Q2

REPORT INFORMATION
  Report Type: 
  Country: None (occurrence: None)
  Receive Date: 20070625
  Receipt Date: 20070413
  Transmission Date: 20071010
  Serious: No
  Sender: FDA-Public Use
  Company Number: US-ASTRAZENECA-2007UW07264

PATIENT
  Age: 72 Year
  Sex: Male
  Weight: 94.1 kg

DRUGS (8)
  1. CRESTOR [Suspect]
     Indication: HYPERCHOLESTEROLAEMIA
     Route: 048
     Dates: start: 20050101, end: 20070401
  2. INDERAL [Concomitant]
  3. DIOVAN HCT [Concomitant]
     Dosage: 320/12.5 MG
  4. KLONOPIN [Concomitant]
  5. MYSOLINE [Concomitant]
  6. ECOTRIN [Concomitant]
  7. OMEPRAZOLE [Concomitant]
  8. NIFEDIPINE [Concomitant]

REACTIONS (2)
  - MYALGIA [None]
  - NEUROPATHY [None]
